FAERS Safety Report 17075195 (Version 1)
Quarter: 2019Q4

REPORT INFORMATION
  Report Type: Spontaneous
  Country: NO (occurrence: NO)
  Receive Date: 20191126
  Receipt Date: 20191126
  Transmission Date: 20200122
  Serious: Yes (Hospitalization)
  Sender: FDA-Public Use
  Company Number: NO-ENDO PHARMACEUTICALS INC-2019-110062

PATIENT
  Age: 54 Year
  Sex: Male

DRUGS (2)
  1. BOSENTAN. [Suspect]
     Active Substance: BOSENTAN
     Indication: RAYNAUD^S PHENOMENON
  2. BOSENTAN. [Suspect]
     Active Substance: BOSENTAN
     Indication: SYSTEMIC SCLERODERMA
     Dosage: UNK UNKNOWN, UNKNOWN
     Route: 065

REACTIONS (2)
  - Capillary leak syndrome [Recovering/Resolving]
  - Off label use [Recovered/Resolved]
